FAERS Safety Report 5838262-6 (Version None)
Quarter: 2008Q3

REPORT INFORMATION
  Report Type: 
  Country: None (occurrence: None)
  Receive Date: 20080808
  Receipt Date: 20080729
  Transmission Date: 20090109
  Serious: Yes (Hospitalization)
  Sender: FDA-Public Use
  Company Number: US-ABBOTT-08P-163-0467402-00

PATIENT
  Sex: Female
  Weight: 94.432 kg

DRUGS (16)
  1. DEPAKOTE [Suspect]
     Indication: CONVULSION
     Route: 048
     Dates: start: 20061201, end: 20080610
  2. DEPAKOTE [Suspect]
     Route: 048
     Dates: start: 20080611, end: 20080706
  3. DEPAKOTE [Suspect]
     Dosage: 1 250MG TAB IN AM AND 1 250MG TAB IN PM
     Route: 048
     Dates: start: 20080707, end: 20080724
  4. DEPAKOTE [Suspect]
     Route: 048
     Dates: start: 20080725
  5. MIRTAZAPINE [Concomitant]
     Indication: DEPRESSION
     Route: 048
  6. LORAZEPAM [Concomitant]
     Indication: ANXIETY
     Route: 048
     Dates: start: 20070101
  7. AMLODIPINE [Concomitant]
     Indication: BLOOD PRESSURE
     Route: 048
     Dates: start: 20071101
  8. PIOGLITAZONE [Concomitant]
     Indication: DIABETES MELLITUS
     Route: 048
     Dates: start: 20050101
  9. METOPROLOL SUCCINATE [Concomitant]
     Indication: BLOOD PRESSURE
     Route: 048
     Dates: start: 20050101
  10. GEMFIBROZIL [Concomitant]
     Indication: BLOOD CHOLESTEROL
     Route: 048
     Dates: start: 20070101
  11. DONEPEZIL HCL [Concomitant]
     Indication: DEMENTIA
     Route: 048
     Dates: start: 20050101
  12. GABAPENTIN [Concomitant]
     Indication: CONVULSION
     Route: 048
     Dates: start: 20060101
  13. CEREFOLIN [Concomitant]
     Indication: SUPPLEMENTATION THERAPY
     Route: 048
  14. ACETYLSALICYLIC ACID SRT [Concomitant]
     Indication: CARDIAC DISORDER
     Route: 048
     Dates: start: 20020101
  15. MAGNESIUM OXIDE [Concomitant]
     Indication: MINERAL SUPPLEMENTATION
     Route: 048
     Dates: start: 20020101
  16. FERROUS SULFATE TAB [Concomitant]
     Indication: MINERAL SUPPLEMENTATION
     Route: 048
     Dates: start: 20030101

REACTIONS (5)
  - ACTIVITIES OF DAILY LIVING IMPAIRED [None]
  - CONVULSION [None]
  - DRUG LEVEL DECREASED [None]
  - LETHARGY [None]
  - MOBILITY DECREASED [None]
